FAERS Safety Report 7989423-1 (Version None)
Quarter: 2011Q4

REPORT INFORMATION
  Report Type: 
  Country: None (occurrence: None)
  Receive Date: 20111215
  Receipt Date: 20111130
  Transmission Date: 20120403
  Serious: Yes (Death)
  Sender: FDA-Public Use
  Company Number: 2011-534

PATIENT
  Age: 62 Year
  Sex: Male

DRUGS (1)
  1. PRIALT [Suspect]
     Dosage: UG, ONCE/HOUR, INTRATHECAL
     Route: 037

REACTIONS (1)
  - DEATH [None]
